FAERS Safety Report 11803702 (Version 1)
Quarter: 2015Q4

REPORT INFORMATION
  Report Type: Spontaneous
  Country: US (occurrence: US)
  Receive Date: 20151204
  Receipt Date: 20151204
  Transmission Date: 20160305
  Serious: Yes (Other)
  Sender: FDA-Public Use
  Company Number: US-PFIZER INC-2015421138

PATIENT
  Age: 54 Year
  Sex: Female
  Weight: 109 kg

DRUGS (1)
  1. LIPITOR [Suspect]
     Active Substance: ATORVASTATIN CALCIUM
     Dosage: 160 MG, 1X/DAY

REACTIONS (1)
  - Diabetes mellitus [Unknown]
